FAERS Safety Report 7441463-7 (Version None)
Quarter: 2011Q2

REPORT INFORMATION
  Report Type: 
  Country: None (occurrence: None)
  Receive Date: 20110426
  Receipt Date: 20110426
  Transmission Date: 20111010
  Serious: Yes (Hospitalization)
  Sender: FDA-Public Use
  Company Number: None

PATIENT
  Sex: Female
  Weight: 83 kg

DRUGS (2)
  1. TAXOL [Suspect]
     Dosage: 242 MG
     Dates: end: 20091116
  2. CISPLATIN [Suspect]
     Dosage: 90 MG
     Dates: end: 20091116

REACTIONS (5)
  - CONSTIPATION [None]
  - PAIN [None]
  - WHITE BLOOD CELL COUNT DECREASED [None]
  - FEBRILE NEUTROPENIA [None]
  - NAUSEA [None]
